FAERS Safety Report 22632234 (Version 5)
Quarter: 2024Q1

REPORT INFORMATION
  Report Type: Report from Study
  Country: US (occurrence: US)
  Receive Date: 20230623
  Receipt Date: 20240112
  Transmission Date: 20240409
  Serious: No
  Sender: FDA-Public Use
  Company Number: US-ACADIA PHARMACEUTICALS INC.-ACA-2023-TRF-002150

PATIENT
  Age: 11 Year
  Sex: Female

DRUGS (4)
  1. DAYBUE [Suspect]
     Active Substance: TROFINETIDE
     Indication: Rett syndrome
     Dosage: 30 MILLILITER, BID, VIA G TUBE
     Dates: start: 20230427
  2. DAYBUE [Suspect]
     Active Substance: TROFINETIDE
     Dosage: 40 MILLILITER BID
     Route: 065
  3. DAYBUE [Suspect]
     Active Substance: TROFINETIDE
     Dosage: 10 MILILITER
     Route: 065
  4. DAYBUE [Suspect]
     Active Substance: TROFINETIDE
     Dosage: 30 MILLILITER, BID

REACTIONS (8)
  - Dermatitis diaper [Unknown]
  - Product dose omission issue [Unknown]
  - Underdose [Unknown]
  - Diarrhoea [Recovered/Resolved]
  - Diarrhoea [Not Recovered/Not Resolved]
  - Diarrhoea [Unknown]
  - Diarrhoea [Not Recovered/Not Resolved]
  - Diarrhoea [Not Recovered/Not Resolved]

NARRATIVE: CASE EVENT DATE: 20230901
